FAERS Safety Report 16802835 (Version 3)
Quarter: 2019Q4

REPORT INFORMATION
  Report Type: Report from Study
  Country: US (occurrence: US)
  Receive Date: 20190913
  Receipt Date: 20191213
  Transmission Date: 20200122
  Serious: No
  Sender: FDA-Public Use
  Company Number: PHEH2019US037324

PATIENT
  Sex: Female

DRUGS (2)
  1. GLEEVEC [Suspect]
     Active Substance: IMATINIB MESYLATE
     Indication: MUSCLE SPASMS
  2. GLEEVEC [Suspect]
     Active Substance: IMATINIB MESYLATE
     Indication: CHRONIC MYELOID LEUKAEMIA
     Dosage: 400 MG, QD
     Route: 048

REACTIONS (8)
  - Nasal congestion [Unknown]
  - Product use in unapproved indication [Unknown]
  - Somnolence [Unknown]
  - Arthralgia [Unknown]
  - Productive cough [Unknown]
  - Malaise [Unknown]
  - Mass [Unknown]
  - Muscle spasms [Unknown]
